FAERS Safety Report 20723987 (Version 2)
Quarter: 2022Q2

REPORT INFORMATION
  Report Type: Report from Study
  Country: MX (occurrence: MX)
  Receive Date: 20220419
  Receipt Date: 20220420
  Transmission Date: 20220720
  Serious: No
  Sender: FDA-Public Use
  Company Number: MX-UCBSA-2022021387

PATIENT
  Sex: Female
  Weight: 68 kg

DRUGS (4)
  1. ROTIGOTINE [Suspect]
     Active Substance: ROTIGOTINE
     Indication: Parkinson^s disease
     Dosage: 8 MILLIGRAM, ONCE DAILY (QD)
     Route: 062
     Dates: start: 2022
  2. CARBIDOPA\LEVODOPA [Concomitant]
     Active Substance: CARBIDOPA\LEVODOPA
     Indication: Parkinson^s disease
     Dosage: 250 MILLIGRAM
     Route: 048
  3. ATORVASTATIN AN [Concomitant]
     Indication: Diabetes mellitus
     Dosage: 10 MILLIGRAM
  4. GLIMETAL [Concomitant]
     Indication: Diabetes mellitus
     Dosage: 2 MILLIGRAM, ONCE DAILY (QD)

REACTIONS (3)
  - Product quality issue [Unknown]
  - Therapeutic product effect incomplete [Unknown]
  - Product adhesion issue [Unknown]

NARRATIVE: CASE EVENT DATE: 20220101
